FAERS Safety Report 4578326-0 (Version None)
Quarter: 2005Q1

REPORT INFORMATION
  Report Type: 
  Country: None (occurrence: None)
  Receive Date: 20050211
  Receipt Date: 20041231
  Transmission Date: 20050727
  Serious: Yes (Other)
  Sender: FDA-Public Use
  Company Number: 200510065GDDC

PATIENT
  Age: 42 Year
  Sex: Female

DRUGS (2)
  1. RIFAMPICIN [Suspect]
     Indication: PULMONARY TUBERCULOSIS
     Route: 048
  2. ISONIAZID [Suspect]
     Indication: PULMONARY TUBERCULOSIS
     Route: 048

REACTIONS (13)
  - ARTERIAL DISORDER [None]
  - ARTHRALGIA [None]
  - CONNECTIVE TISSUE DISORDER [None]
  - DEMYELINATION [None]
  - FEELING COLD [None]
  - GENERAL PHYSICAL HEALTH DETERIORATION [None]
  - HISTONE ANTIBODY POSITIVE [None]
  - HYPOAESTHESIA [None]
  - LUPUS-LIKE SYNDROME [None]
  - PAIN IN EXTREMITY [None]
  - PERIPHERAL ISCHAEMIA [None]
  - VASCULAR CALCIFICATION [None]
  - VASCULITIS [None]
